FAERS Safety Report 12612381 (Version 1)
Quarter: 2016Q3

REPORT INFORMATION
  Report Type: Spontaneous
  Country: US (occurrence: US)
  Receive Date: 20160801
  Receipt Date: 20160801
  Transmission Date: 20161109
  Serious: Yes (Other)
  Sender: FDA-Public Use
  Company Number: US-SAGENTPRD-2016-US-000021

PATIENT
  Age: 63 Year
  Sex: Female
  Weight: 68.6 kg

DRUGS (10)
  1. NO DRUG NAME [Concomitant]
  2. NO DRUG NAME [Concomitant]
  3. NO DRUG NAME [Concomitant]
  4. NO DRUG NAME [Concomitant]
  5. NO DRUG NAME [Concomitant]
  6. HEPARIN SODIUM INJECTION, MDV, 10 ML, 1000 UNIT/ML [Suspect]
     Active Substance: HEPARIN SODIUM
     Dosage: 15,000 U TOTAL DOSE
     Route: 042
     Dates: start: 20160721, end: 20160721
  7. NO DRUG NAME [Concomitant]
  8. NO DRUG NAME [Concomitant]
  9. NO DRUG NAME [Concomitant]
  10. NO DRUG NAME [Concomitant]

REACTIONS (1)
  - Drug ineffective [Unknown]

NARRATIVE: CASE EVENT DATE: 20160721
